FAERS Safety Report 8720395 (Version 5)
Quarter: 2016Q1

REPORT INFORMATION
  Report Type: Spontaneous
  Country: US (occurrence: US)
  Receive Date: 20120813
  Receipt Date: 20160114
  Transmission Date: 20160526
  Serious: Yes (Other)
  Sender: FDA-Public Use
  Company Number: US-PFIZER INC-2012192455

PATIENT
  Age: 87 Year
  Sex: Female
  Weight: 65.31 kg

DRUGS (4)
  1. AZOPT [Concomitant]
     Active Substance: BRINZOLAMIDE
     Indication: GLAUCOMA
     Dosage: 1 GTT, 3X/DAY (1% DROP, ONE DROP IN BOTH EYES THREE TIMES A DAY)
     Route: 047
  2. AZOPT [Concomitant]
     Active Substance: BRINZOLAMIDE
     Dosage: UNK UNK, 2X/DAY
  3. XALATAN [Suspect]
     Active Substance: LATANOPROST
     Indication: GLAUCOMA
     Dosage: 1 GTT, 1X/DAY, (ONE TIME EVERY EVENING)
  4. XALATAN [Suspect]
     Active Substance: LATANOPROST
     Dosage: 1 GTT, 1X/DAY (1 DROP IN BOTH EYES AT NIGHT)

REACTIONS (3)
  - Intraocular pressure test abnormal [Unknown]
  - Glaucoma [Unknown]
  - Eye disorder [Unknown]
